FAERS Safety Report 7724030-7 (Version None)
Quarter: 2011Q3

REPORT INFORMATION
  Report Type: 
  Country: None (occurrence: None)
  Receive Date: 20110901
  Receipt Date: 20110824
  Transmission Date: 20111222
  Serious: Yes (Other)
  Sender: FDA-Public Use
  Company Number: US-BAYER-2011-077404

PATIENT
  Age: 20 Year
  Sex: Female
  Weight: 116.1 kg

DRUGS (1)
  1. MIRENA [Suspect]
     Indication: CONTRACEPTION
     Dosage: UNK, CONT
     Route: 015
     Dates: start: 20090401

REACTIONS (6)
  - WEIGHT INCREASED [None]
  - ASTHENIA [None]
  - AMENORRHOEA [None]
  - PSYCHIATRIC SYMPTOM [None]
  - DEPRESSION [None]
  - MOOD SWINGS [None]
